FAERS Safety Report 10966958 (Version 1)
Quarter: 2015Q1

REPORT INFORMATION
  Report Type: Spontaneous
  Country: US (occurrence: US)
  Receive Date: 20150330
  Receipt Date: 20150330
  Transmission Date: 20150721
  Serious: No
  Sender: FDA-Public Use
  Company Number: US-ELI_LILLY_AND_COMPANY-US201503005845

PATIENT
  Sex: Male

DRUGS (1)
  1. INSULIN HUMAN [Suspect]
     Active Substance: INSULIN HUMAN
     Dosage: 20 U, BID
     Route: 065
     Dates: start: 2011

REACTIONS (5)
  - Dizziness [Recovered/Resolved]
  - Incorrect dose administered [Unknown]
  - Medication error [Unknown]
  - Extra dose administered [Unknown]
  - Drug dose omission [Unknown]
